FAERS Safety Report 11220220 (Version 1)
Quarter: 2015Q2

REPORT INFORMATION
  Report Type: Report from Study
  Country: US (occurrence: US)
  Receive Date: 20150625
  Receipt Date: 20150625
  Transmission Date: 20150821
  Serious: No
  Sender: FDA-Public Use
  Company Number: US-EXELIXIS-CABO-15005286

PATIENT
  Age: 63 Year
  Sex: Male

DRUGS (2)
  1. CABOZANTINIB [Suspect]
     Active Substance: CABOZANTINIB
     Dosage: 80 MG, QD
     Route: 048
     Dates: start: 20150428
  2. CABOZANTINIB [Suspect]
     Active Substance: CABOZANTINIB
     Indication: SALIVARY GLAND CANCER
     Dosage: 100 MG, QD
     Route: 048
     Dates: start: 20150304, end: 20150415

REACTIONS (10)
  - Neuropathy peripheral [Unknown]
  - Dysgeusia [Unknown]
  - Vomiting [Unknown]
  - Memory impairment [Unknown]
  - Oral discomfort [Unknown]
  - Decreased appetite [Unknown]
  - Mouth ulceration [Recovering/Resolving]
  - Off label use [Unknown]
  - Nausea [Unknown]
  - Rash erythematous [Unknown]

NARRATIVE: CASE EVENT DATE: 20150505
